FAERS Safety Report 5135433-1 (Version None)
Quarter: 2006Q4

REPORT INFORMATION
  Report Type: 
  Country: None (occurrence: None)
  Receive Date: 20061026
  Receipt Date: 20061017
  Transmission Date: 20070319
  Serious: Yes (Disabling)
  Sender: FDA-Public Use
  Company Number: JP-JPN-A200604266

PATIENT
  Age: 29 Year
  Sex: Male

DRUGS (5)
  1. PAXIL [Suspect]
     Indication: DEPRESSION
     Dosage: 20MG PER DAY
     Route: 048
  2. DOGMATYL [Concomitant]
     Dosage: 50MG THREE TIMES PER DAY
     Route: 065
  3. EURODIN [Concomitant]
     Dosage: 1UNIT PER DAY
     Route: 048
  4. LORAZEPAM [Concomitant]
     Dosage: .5MG TWICE PER DAY
     Route: 048
  5. MIYA BM [Concomitant]
     Dosage: 3UNIT THREE TIMES PER DAY
     Route: 048

REACTIONS (1)
  - ERECTILE DYSFUNCTION [None]
